FAERS Safety Report 22293154 (Version 1)
Quarter: 2023Q2

REPORT INFORMATION
  Report Type: Spontaneous
  Country: US (occurrence: US)
  Receive Date: 20230508
  Receipt Date: 20230508
  Transmission Date: 20230721
  Serious: Yes (Other)
  Sender: FDA-Public Use
  Company Number: US-IMMUNOGEN, INC.-US-IMGN-23-00156

PATIENT
  Sex: Female

DRUGS (2)
  1. ELAHERE [Suspect]
     Active Substance: MIRVETUXIMAB SORAVTANSINE-GYNX
     Indication: Ovarian cancer
     Dosage: UNK, CYCLIC
     Route: 042
     Dates: start: 20230320
  2. ELAHERE [Suspect]
     Active Substance: MIRVETUXIMAB SORAVTANSINE-GYNX
     Dosage: UNK, CYCLIC
     Route: 042
     Dates: start: 20230410

REACTIONS (3)
  - Neuropathy peripheral [Unknown]
  - Carbohydrate antigen 125 increased [Unknown]
  - Pruritus [Unknown]
